FAERS Safety Report 6121281-2 (Version None)
Quarter: 2009Q1

REPORT INFORMATION
  Report Type: 
  Country: None (occurrence: None)
  Receive Date: 20090312
  Receipt Date: 20090312
  Transmission Date: 20090719
  Serious: Yes (Death)
  Sender: FDA-Public Use
  Company Number: None

PATIENT
  Age: 85 Year
  Sex: Female

DRUGS (1)
  1. LASIX [Suspect]
     Indication: FLUID RETENTION
     Dosage: 40MG BID PO
     Route: 048

REACTIONS (11)
  - ASTHENIA [None]
  - DEHYDRATION [None]
  - FATIGUE [None]
  - HYPERCAPNIA [None]
  - HYPOKALAEMIA [None]
  - LETHARGY [None]
  - MENTAL STATUS CHANGES [None]
  - METABOLIC ALKALOSIS [None]
  - POLYURIA [None]
  - RESPIRATORY ACIDOSIS [None]
  - SYNCOPE [None]
